FAERS Safety Report 7274826-3 (Version None)
Quarter: 2011Q1

REPORT INFORMATION
  Report Type: 
  Country: None (occurrence: None)
  Receive Date: 20110204
  Receipt Date: 20110125
  Transmission Date: 20110831
  Serious: Yes (Other)
  Sender: FDA-Public Use
  Company Number: GB-TEVA-265548ISR

PATIENT
  Age: 50 Year
  Sex: Female

DRUGS (1)
  1. SIMVASTATIN [Suspect]
     Indication: DIABETES MELLITUS
     Dates: start: 20101008, end: 20101104

REACTIONS (1)
  - VISUAL ACUITY REDUCED [None]
